FAERS Safety Report 9153345 (Version 1)
Quarter: 2013Q1

REPORT INFORMATION
  Report Type: Spontaneous
  Country: US (occurrence: None)
  Receive Date: 20130304
  Receipt Date: 20130304
  Transmission Date: 20140127
  Serious: No
  Sender: FDA-Public Use
  Company Number: None

PATIENT
  Age: 40 Year
  Sex: Male
  Weight: 83.01 kg

DRUGS (1)
  1. ESCITALOPRAM [Suspect]
     Route: 048
     Dates: start: 20130210, end: 20130225

REACTIONS (5)
  - Product substitution issue [None]
  - Anxiety [None]
  - Condition aggravated [None]
  - Insomnia [None]
  - Irritable bowel syndrome [None]
